FAERS Safety Report 12841661 (Version 2)
Quarter: 2016Q4

REPORT INFORMATION
  Report Type: Spontaneous
  Country: US (occurrence: US)
  Receive Date: 20161012
  Receipt Date: 20161104
  Transmission Date: 20170207
  Serious: Yes (Hospitalization, Other)
  Sender: FDA-Public Use
  Company Number: US-SAOL THERAPEUTICS-2016SAO00803

PATIENT
  Sex: Female

DRUGS (2)
  1. BACLOFEN. [Suspect]
     Active Substance: BACLOFEN
     Indication: PAIN
     Route: 037
  2. BUPIVACAINE. [Suspect]
     Active Substance: BUPIVACAINE
     Route: 037

REACTIONS (9)
  - Sciatic nerve injury [Unknown]
  - Off label use [Unknown]
  - Hospitalisation [Unknown]
  - Pain [Unknown]
  - Device dislocation [Unknown]
  - Urinary retention [Unknown]
  - Drug withdrawal syndrome [Recovered/Resolved]
  - Paralysis [Unknown]
  - Complication associated with device [Unknown]

NARRATIVE: CASE EVENT DATE: 20160118
